FAERS Safety Report 9548663 (Version 1)
Quarter: 2013Q2

REPORT INFORMATION
  Report Type: Spontaneous
  Country: US (occurrence: None)
  Receive Date: 20130606
  Receipt Date: 20130606
  Transmission Date: 20140414
  Serious: Yes (Other)
  Sender: FDA-Public Use
  Company Number: 1303USA013333

PATIENT
  Age: 81 Year
  Sex: Female

DRUGS (1)
  1. ZIOPTAN [Suspect]
     Indication: GLAUCOMA
     Dosage: 1 DROP IN EACH EYE AT BED, UNK, OPHTHALMIC
     Route: 047
     Dates: start: 20130322

REACTIONS (3)
  - Pain [None]
  - Pruritus [None]
  - Erythema [None]
